FAERS Safety Report 6836612-5 (Version None)
Quarter: 2010Q3

REPORT INFORMATION
  Report Type: 
  Country: None (occurrence: None)
  Receive Date: 20100713
  Receipt Date: 20100705
  Transmission Date: 20110219
  Serious: Yes (Hospitalization)
  Sender: FDA-Public Use
  Company Number: PHHO2010TW08924

PATIENT
  Sex: Male
  Weight: 55 kg

DRUGS (3)
  1. ZOLEDRONATE T29581+SOLINJ+BM [Suspect]
     Indication: PROSTATE CANCER
     Dosage: 3.3 MG, UNK
     Route: 042
     Dates: start: 20080327, end: 20090903
  2. VITAMIN D [Concomitant]
     Dosage: UNK
  3. CALCIUM [Concomitant]

REACTIONS (10)
  - ABSCESS [None]
  - CELLULITIS [None]
  - DEBRIDEMENT [None]
  - MASS [None]
  - OSTEITIS [None]
  - OSTEOMYELITIS [None]
  - OSTEONECROSIS [None]
  - OSTEONECROSIS OF JAW [None]
  - SEQUESTRECTOMY [None]
  - SWELLING [None]
